FAERS Safety Report 20311661 (Version 1)
Quarter: 2022Q1

REPORT INFORMATION
  Report Type: Spontaneous
  Country: US (occurrence: US)
  Receive Date: 20220108
  Receipt Date: 20220108
  Transmission Date: 20220423
  Serious: Yes (Hospitalization)
  Sender: FDA-Public Use
  Company Number: US-UNITED THERAPEUTICS-UNT-2021-025322

PATIENT
  Sex: Female
  Weight: 73.469 kg

DRUGS (3)
  1. TYVASO [Suspect]
     Active Substance: TREPROSTINIL
     Indication: Pulmonary arterial hypertension
     Dosage: UNK
     Dates: start: 20210422
  2. TYVASO [Suspect]
     Active Substance: TREPROSTINIL
     Dosage: 18-54 ?G, QID
     Dates: start: 2021
  3. TYVASO [Suspect]
     Active Substance: TREPROSTINIL
     Dosage: UNK
     Dates: start: 2021

REACTIONS (15)
  - Pain in extremity [Recovering/Resolving]
  - Cough [Not Recovered/Not Resolved]
  - Productive cough [Unknown]
  - Abdominal discomfort [Unknown]
  - Musculoskeletal discomfort [Unknown]
  - Vomiting [Unknown]
  - Dizziness [Unknown]
  - Nasopharyngitis [Unknown]
  - Product quality issue [Unknown]
  - Product quality issue [Unknown]
  - Product colour issue [Unknown]
  - Device electrical finding [Unknown]
  - Device information output issue [Unknown]
  - Product quality issue [Unknown]
  - Product label confusion [Unknown]

NARRATIVE: CASE EVENT DATE: 20210101
